FAERS Safety Report 13660290 (Version 1)
Quarter: 2017Q2

REPORT INFORMATION
  Report Type: Spontaneous
  Country: DK (occurrence: DK)
  Receive Date: 20170616
  Receipt Date: 20170616
  Transmission Date: 20170830
  Serious: Yes (Hospitalization, Disabling)
  Sender: FDA-Public Use
  Company Number: DK-TEVA-776997ACC

PATIENT
  Age: 52 Year
  Sex: Male

DRUGS (3)
  1. ATORVASTATIN ^ACTAVIS^ [Suspect]
     Active Substance: ATORVASTATIN
     Indication: ARTERIOSCLEROSIS
     Dosage: FROM 13 JULY 2017 40 MG DAILY, INCREASED TO 80 MG DAILY NOVEMBER 2014
     Route: 048
     Dates: start: 20140713, end: 201502
  2. CLOPIDOGREL [Concomitant]
     Active Substance: CLOPIDOGREL BISULFATE
     Route: 048
     Dates: start: 20140713
  3. HJERTEMAGNYL [Concomitant]
     Active Substance: ASPIRIN\MAGNESIUM OXIDE
     Route: 048
     Dates: start: 20140713

REACTIONS (16)
  - Hemiplegia [Not Recovered/Not Resolved]
  - Dialysis [Recovered/Resolved]
  - General physical health deterioration [Unknown]
  - Weight decreased [Unknown]
  - Aphasia [Not Recovered/Not Resolved]
  - Blood pressure decreased [Unknown]
  - Muscle necrosis [Unknown]
  - Diarrhoea [Unknown]
  - Rhabdomyolysis [Recovered/Resolved with Sequelae]
  - Cerebral thrombosis [Recovered/Resolved with Sequelae]
  - Clostridium difficile infection [Unknown]
  - Discomfort [Unknown]
  - Renal failure [Recovered/Resolved with Sequelae]
  - Vomiting [Unknown]
  - Thrombosis [Unknown]
  - Memory impairment [Not Recovered/Not Resolved]

NARRATIVE: CASE EVENT DATE: 201501
